FAERS Safety Report 24110249 (Version 1)
Quarter: 2024Q3

REPORT INFORMATION
  Report Type: Spontaneous
  Country: PT (occurrence: PT)
  Receive Date: 20240718
  Receipt Date: 20240718
  Transmission Date: 20241017
  Serious: Yes (Hospitalization, Other)
  Sender: PFIZER
  Company Number: PT-GILEAD-2024-0675540

PATIENT
  Sex: Female
  Weight: 95.5 kg

DRUGS (71)
  1. PEMETREXED [Suspect]
     Active Substance: PEMETREXED
     Indication: Non-small cell lung cancer
     Dosage: 1060 MG
     Route: 042
     Dates: start: 20231009, end: 20231009
  2. PEMETREXED [Suspect]
     Active Substance: PEMETREXED
     Dosage: 1060 MG
     Route: 042
     Dates: start: 20231009, end: 20231120
  3. PEMETREXED [Suspect]
     Active Substance: PEMETREXED
     Dosage: 1060 MG
     Route: 042
     Dates: start: 20231102, end: 20231102
  4. PEMETREXED [Suspect]
     Active Substance: PEMETREXED
     Dosage: 1060 MG
     Route: 042
     Dates: start: 20231120, end: 20231120
  5. PEMETREXED [Suspect]
     Active Substance: PEMETREXED
     Dosage: 1055 MG
     Route: 042
     Dates: start: 20231213, end: 20231213
  6. PEMETREXED [Suspect]
     Active Substance: PEMETREXED
     Dosage: 1055 MG
     Route: 042
     Dates: start: 20231213, end: 20240417
  7. PEMETREXED [Suspect]
     Active Substance: PEMETREXED
     Dosage: 1055 MG
     Route: 042
     Dates: start: 20240104, end: 20240104
  8. PEMETREXED [Suspect]
     Active Substance: PEMETREXED
     Dosage: 1055 MG
     Route: 042
     Dates: start: 20240122, end: 20240122
  9. PEMETREXED [Suspect]
     Active Substance: PEMETREXED
     Dosage: 1055 MG
     Route: 042
     Dates: start: 20240212, end: 20240212
  10. PEMETREXED [Suspect]
     Active Substance: PEMETREXED
     Dosage: 1055 MG
     Route: 042
     Dates: start: 20240306, end: 20240306
  11. PEMETREXED [Suspect]
     Active Substance: PEMETREXED
     Dosage: 1055 MG
     Route: 042
     Dates: start: 20240327, end: 20240327
  12. PEMETREXED [Suspect]
     Active Substance: PEMETREXED
     Dosage: 1055 MG
     Route: 042
     Dates: start: 20240417, end: 20240417
  13. PEMETREXED [Suspect]
     Active Substance: PEMETREXED
     Dosage: 787.5 MG
     Route: 042
     Dates: start: 20240508, end: 20240508
  14. PEMETREXED [Suspect]
     Active Substance: PEMETREXED
     Dosage: 1055 MG
     Route: 042
     Dates: start: 20240508, end: 20240529
  15. PEMETREXED [Suspect]
     Active Substance: PEMETREXED
     Dosage: 787.5 MG
     Route: 042
     Dates: start: 20240529, end: 20240529
  16. PEMETREXED [Suspect]
     Active Substance: PEMETREXED
     Dosage: 787.5 MG
     Route: 042
     Dates: start: 20240626, end: 20240626
  17. CARBOPLATIN [Suspect]
     Active Substance: CARBOPLATIN
     Indication: Non-small cell lung cancer
     Dosage: 750 MG
     Route: 042
     Dates: start: 20231009, end: 20231009
  18. CARBOPLATIN [Suspect]
     Active Substance: CARBOPLATIN
     Dosage: 750 MG
     Route: 042
     Dates: start: 20231009, end: 20231213
  19. CARBOPLATIN [Suspect]
     Active Substance: CARBOPLATIN
     Dosage: 750 MG
     Route: 042
     Dates: start: 20231102, end: 20231102
  20. CARBOPLATIN [Suspect]
     Active Substance: CARBOPLATIN
     Dosage: 750 MG
     Route: 042
     Dates: start: 20231120, end: 20231120
  21. CARBOPLATIN [Suspect]
     Active Substance: CARBOPLATIN
     Dosage: 750 MG
     Route: 042
     Dates: start: 20231213, end: 20231213
  22. PEMBROLIZUMAB [Suspect]
     Active Substance: PEMBROLIZUMAB
     Indication: Non-small cell lung cancer
     Dosage: 200 MG
     Route: 042
     Dates: start: 20231009, end: 20231009
  23. PEMBROLIZUMAB [Suspect]
     Active Substance: PEMBROLIZUMAB
     Dosage: 200 MG
     Route: 042
     Dates: start: 20231009, end: 20240529
  24. PEMBROLIZUMAB [Suspect]
     Active Substance: PEMBROLIZUMAB
     Dosage: 200 MG
     Route: 042
     Dates: start: 20231102, end: 20231102
  25. PEMBROLIZUMAB [Suspect]
     Active Substance: PEMBROLIZUMAB
     Dosage: 200 MG
     Route: 042
     Dates: start: 20231120, end: 20231120
  26. PEMBROLIZUMAB [Suspect]
     Active Substance: PEMBROLIZUMAB
     Dosage: 200 MG
     Route: 042
     Dates: start: 20231213, end: 20231213
  27. PEMBROLIZUMAB [Suspect]
     Active Substance: PEMBROLIZUMAB
     Dosage: 200 MG
     Route: 042
     Dates: start: 20240104, end: 20240104
  28. PEMBROLIZUMAB [Suspect]
     Active Substance: PEMBROLIZUMAB
     Dosage: 200 MG
     Route: 042
     Dates: start: 20240122, end: 20240122
  29. PEMBROLIZUMAB [Suspect]
     Active Substance: PEMBROLIZUMAB
     Dosage: 200 MG
     Route: 042
     Dates: start: 20240212, end: 20240212
  30. PEMBROLIZUMAB [Suspect]
     Active Substance: PEMBROLIZUMAB
     Dosage: 200 MG
     Route: 042
     Dates: start: 20240306, end: 20240306
  31. PEMBROLIZUMAB [Suspect]
     Active Substance: PEMBROLIZUMAB
     Dosage: 200 MG
     Route: 042
     Dates: start: 20240327, end: 20240327
  32. PEMBROLIZUMAB [Suspect]
     Active Substance: PEMBROLIZUMAB
     Dosage: 200 MG
     Route: 042
     Dates: start: 20240417, end: 20240417
  33. PEMBROLIZUMAB [Suspect]
     Active Substance: PEMBROLIZUMAB
     Dosage: 200 MG
     Route: 042
     Dates: start: 20240508, end: 20240508
  34. PEMBROLIZUMAB [Suspect]
     Active Substance: PEMBROLIZUMAB
     Dosage: 200 MG
     Route: 042
     Dates: start: 20240529, end: 20240529
  35. PEMBROLIZUMAB [Suspect]
     Active Substance: PEMBROLIZUMAB
     Dosage: 200 MG
     Route: 042
     Dates: start: 20240626, end: 20240626
  36. FOLIC ACID [Concomitant]
     Active Substance: FOLIC ACID
     Indication: Premedication
     Dosage: UNK
     Route: 048
     Dates: start: 20230927
  37. METHYLPREDNISOLONE [Concomitant]
     Active Substance: METHYLPREDNISOLONE
     Indication: Photosensitivity reaction
     Dosage: UNK
     Route: 061
     Dates: start: 20231017
  38. ALPRAZOLAM [Concomitant]
     Active Substance: ALPRAZOLAM
     Indication: Anxiety
     Dosage: UNK
     Route: 048
  39. ALPRAZOLAM [Concomitant]
     Active Substance: ALPRAZOLAM
     Dosage: UNK
     Route: 048
  40. ALPRAZOLAM [Concomitant]
     Active Substance: ALPRAZOLAM
     Dosage: UNK
     Route: 048
  41. ALPRAZOLAM [Concomitant]
     Active Substance: ALPRAZOLAM
     Dosage: UNK
     Route: 048
  42. ALPRAZOLAM [Concomitant]
     Active Substance: ALPRAZOLAM
     Dosage: UNK
     Route: 048
  43. BETAMETHASONE DIPROPIONATE\CLOTRIMAZOLE [Concomitant]
     Active Substance: BETAMETHASONE DIPROPIONATE\CLOTRIMAZOLE
     Indication: Psoriasis
     Dosage: UNK
     Route: 061
     Dates: start: 20231017
  44. DEXAMETHASONE [Concomitant]
     Active Substance: DEXAMETHASONE
     Indication: Premedication
     Dosage: UNK
     Route: 042
     Dates: start: 20240508, end: 20240508
  45. DEXAMETHASONE [Concomitant]
     Active Substance: DEXAMETHASONE
     Dosage: UNK
     Route: 048
     Dates: start: 20240528, end: 20240530
  46. DEXAMETHASONE [Concomitant]
     Active Substance: DEXAMETHASONE
     Dosage: UNK
     Route: 042
     Dates: start: 20240529, end: 20240529
  47. DEXAMETHASONE [Concomitant]
     Active Substance: DEXAMETHASONE
     Dosage: UNK
     Route: 042
     Dates: start: 20240626, end: 20240626
  48. DEXAMETHASONE [Concomitant]
     Active Substance: DEXAMETHASONE
     Dosage: UNK
     Route: 048
     Dates: start: 20240625, end: 20240627
  49. BILASTINE [Concomitant]
     Active Substance: BILASTINE
     Indication: Photosensitivity reaction
     Dosage: UNK
     Route: 048
     Dates: start: 20231017
  50. CYANOCOBALAMIN [Concomitant]
     Active Substance: CYANOCOBALAMIN
     Indication: Premedication
     Dosage: UNK
     Route: 030
     Dates: start: 20240529, end: 20240529
  51. NETUPITANT/PALONOSETRON HYDROCHLORIDE [Concomitant]
     Indication: Premedication
     Dosage: UNK
     Route: 048
     Dates: start: 20240508, end: 20240508
  52. NETUPITANT/PALONOSETRON HYDROCHLORIDE [Concomitant]
     Dosage: UNK
     Route: 048
     Dates: start: 20240529, end: 20240529
  53. FERROUS SULFATE [Concomitant]
     Active Substance: FERROUS SULFATE
     Indication: Anaemia
     Dosage: UNK
     Route: 048
     Dates: start: 20240529
  54. BETAMETHASONE DIPROPIONATE\CALCIPOTRIENE [Concomitant]
     Active Substance: BETAMETHASONE DIPROPIONATE\CALCIPOTRIENE
     Indication: Psoriasis
     Dosage: UNK
     Route: 061
  55. BETAMETHASONE DIPROPIONATE\CALCIPOTRIENE [Concomitant]
     Active Substance: BETAMETHASONE DIPROPIONATE\CALCIPOTRIENE
     Dosage: UNK
     Route: 061
  56. IBUPROFEN [Concomitant]
     Active Substance: IBUPROFEN
     Indication: Prophylaxis
     Dosage: UNK
     Route: 048
     Dates: start: 20231120
  57. ACETAMINOPHEN [Concomitant]
     Active Substance: ACETAMINOPHEN
     Indication: Prophylaxis
     Dosage: UNK
     Route: 048
     Dates: start: 20231120
  58. METOCLOPRAMIDE [Concomitant]
     Active Substance: METOCLOPRAMIDE
     Indication: Prophylaxis
     Dosage: UNK
     Route: 048
     Dates: start: 20231009
  59. FLUCONAZOLE [Concomitant]
     Active Substance: FLUCONAZOLE
     Indication: Stomatitis
     Dosage: UNK
     Route: 048
     Dates: start: 20231213
  60. FLUCONAZOLE [Concomitant]
     Active Substance: FLUCONAZOLE
     Dosage: UNK
     Route: 042
     Dates: start: 20240605, end: 20240621
  61. FLUCONAZOLE [Concomitant]
     Active Substance: FLUCONAZOLE
     Dosage: UNK
     Route: 042
     Dates: start: 20240605
  62. DOXYLAMINE [Concomitant]
     Active Substance: DOXYLAMINE
     Indication: Nausea
     Dosage: UNK
     Route: 048
     Dates: start: 20231213
  63. LIDOCAINE [Concomitant]
     Active Substance: LIDOCAINE
     Indication: Stomatitis
     Dosage: UNK
     Route: 002
     Dates: start: 20231013
  64. ACETYLCYSTEINE [Concomitant]
     Active Substance: ACETYLCYSTEINE
     Indication: Cough
     Dosage: UNK
     Route: 048
     Dates: start: 20231120
  65. LERCANIDIPINE [Concomitant]
     Active Substance: LERCANIDIPINE
     Indication: Hypertension
     Dosage: UNK
     Route: 048
     Dates: start: 20240529
  66. FUROSEMIDE [Concomitant]
     Active Substance: FUROSEMIDE
     Indication: Hypertension
     Dosage: UNK
     Route: 048
     Dates: start: 20240417
  67. NYSTATIN [Concomitant]
     Active Substance: NYSTATIN
     Indication: Stomatitis
     Dosage: UNK
     Route: 002
     Dates: start: 20231013
  68. SODIUM BICARBONATE [Concomitant]
     Active Substance: SODIUM BICARBONATE
     Indication: Stomatitis
     Dosage: UNK
     Route: 002
     Dates: start: 20231013
  69. PIPERACILLIN SODIUM\TAZOBACTAM SODIUM [Concomitant]
     Active Substance: PIPERACILLIN SODIUM\TAZOBACTAM SODIUM
     Dosage: UNK
     Dates: end: 20240612
  70. PREDNISOLONE [Concomitant]
     Active Substance: PREDNISOLONE
     Indication: Diarrhoea
     Dosage: UNK
     Route: 048
     Dates: start: 20240612, end: 20240626
  71. MEXAZOLAM [Concomitant]
     Active Substance: MEXAZOLAM
     Indication: Anxiety
     Dosage: UNK
     Route: 048
     Dates: start: 20240626

REACTIONS (5)
  - Anaemia [Recovered/Resolved with Sequelae]
  - Platelet count decreased [Recovered/Resolved]
  - Infection [Recovered/Resolved]
  - Decreased appetite [Not Recovered/Not Resolved]
  - Hypokalaemia [Not Recovered/Not Resolved]

NARRATIVE: CASE EVENT DATE: 20240603
